FAERS Safety Report 7088522-9 (Version None)
Quarter: 2010Q4

REPORT INFORMATION
  Report Type: 
  Country: None (occurrence: None)
  Receive Date: 20101108
  Receipt Date: 20101104
  Transmission Date: 20110411
  Serious: Yes (Life-Threatening, Other)
  Sender: FDA-Public Use
  Company Number: GB-PFIZER INC-2010141119

PATIENT
  Age: 18 Year
  Sex: Female

DRUGS (1)
  1. DEPO-PROVERA [Suspect]
     Indication: CONTRACEPTION
     Dosage: 150 MG, UNK
     Route: 030
     Dates: start: 20101004

REACTIONS (3)
  - PRURITUS [None]
  - RASH [None]
  - WHEEZING [None]
